FAERS Safety Report 18297260 (Version 2)
Quarter: 2020Q4

REPORT INFORMATION
  Report Type: Spontaneous
  Country: AU (occurrence: AU)
  Receive Date: 20200922
  Receipt Date: 20201014
  Transmission Date: 20210113
  Serious: Yes (Life-Threatening, Hospitalization)
  Sender: FDA-Public Use
  Company Number: AU-ALLERGAN-2035699US

PATIENT
  Sex: Female

DRUGS (2)
  1. BELKYRA [Suspect]
     Active Substance: DEOXYCHOLIC ACID
     Indication: LIPOLYSIS PROCEDURE
     Dosage: UNK, SINGLE
     Route: 058
     Dates: start: 20200915, end: 20200915
  2. LIGNOCAINE [Suspect]
     Active Substance: LIDOCAINE HYDROCHLORIDE
     Indication: ANAESTHESIA
     Dosage: UNK UNK, SINGLE
     Dates: start: 20200915, end: 20200915

REACTIONS (8)
  - Dyspnoea [Unknown]
  - Insomnia [Unknown]
  - Tenderness [Unknown]
  - Swelling [Unknown]
  - Breath sounds abnormal [Unknown]
  - Anaphylactic reaction [Recovered/Resolved]
  - Cough [Unknown]
  - Chest discomfort [Unknown]
